FAERS Safety Report 8132877-0 (Version None)
Quarter: 2012Q1

REPORT INFORMATION
  Report Type: 
  Country: None (occurrence: None)
  Receive Date: 20120103
  Receipt Date: 20111113
  Transmission Date: 20120608
  Serious: No
  Sender: FDA-Public Use
  Company Number: AE-2011-003423

PATIENT
  Age: 62 Year
  Sex: Female
  Weight: 63.05 kg

DRUGS (4)
  1. INCIVEK [Suspect]
     Dosage: 2250 MG (750 MG,3 IN 1 D),ORAL
     Route: 048
     Dates: start: 20111014
  2. PRILOSEC [Concomitant]
  3. COPEGUS [Concomitant]
  4. PEGASYS [Concomitant]

REACTIONS (1)
  - VOMITING [None]
